FAERS Safety Report 9403588 (Version 1)
Quarter: 2013Q3

REPORT INFORMATION
  Report Type: Spontaneous
  Country: GB (occurrence: GB)
  Receive Date: 20130717
  Receipt Date: 20130717
  Transmission Date: 20140515
  Serious: Yes (Hospitalization, Other)
  Sender: FDA-Public Use
  Company Number: GB-009507513-1307GBR002159

PATIENT
  Age: 82 Year
  Sex: Female

DRUGS (4)
  1. ALENDRONATE SODIUM [Suspect]
     Indication: OSTEOPOROTIC FRACTURE
     Dosage: 70 MG, UNK
  2. HYDROXYUREA [Concomitant]
     Indication: POLYCYTHAEMIA VERA
     Dosage: 500 MG, Q3W
  3. HYDROXYUREA [Concomitant]
     Dosage: 1 G, 4 DAYS PER WEEK
  4. ASPIRIN [Concomitant]
     Dosage: 75 MG, QD

REACTIONS (5)
  - Jaw operation [Unknown]
  - Jaw operation [Unknown]
  - Osteonecrosis of jaw [Recovered/Resolved]
  - Tooth extraction [Unknown]
  - Debridement [Unknown]
